FAERS Safety Report 8764435 (Version 2)
Quarter: 2012Q4

REPORT INFORMATION
  Report Type: 
  Country: US (occurrence: US)
  Receive Date: 20120831
  Receipt Date: 20120904
  Transmission Date: 20130627
  Serious: No
  Sender: FDA-Public Use
  Company Number: US-009507513-1208USA005670

PATIENT

DRUGS (4)
  1. MIRALAX [Suspect]
     Indication: MEDICAL OBSERVATION
     Dosage: UNK, Unknown
     Route: 048
  2. MIRALAX [Suspect]
     Indication: PRODUCT USED FOR UNKNOWN INDICATION
  3. CITRACAL [Suspect]
     Indication: PRODUCT USED FOR UNKNOWN INDICATION
     Dosage: UNK, Unknown
  4. MAGNESIA [MILK OF] [Concomitant]
     Indication: CONSTIPATION
     Dosage: UNK, Unknown

REACTIONS (2)
  - Drug ineffective [Unknown]
  - Weight decreased [Unknown]
